FAERS Safety Report 8170169-4 (Version None)
Quarter: 2012Q1

REPORT INFORMATION
  Report Type: 
  Country: None (occurrence: None)
  Receive Date: 20120104
  Receipt Date: 20111128
  Transmission Date: 20120608
  Serious: No
  Sender: FDA-Public Use
  Company Number: 2011HGS-002865

PATIENT
  Age: 58 Year
  Sex: Female
  Weight: 52.6173 kg

DRUGS (14)
  1. LEVOTHYROXIN (LEVOTHYROXINE) (LEVOTHYROXINE) [Concomitant]
  2. TRAMADOL HCL [Concomitant]
  3. POTASSIUM CITRATE [Concomitant]
  4. AMLORIDE (AMILORIDE) [Concomitant]
  5. POTASSIUM CHLORIDE [Concomitant]
  6. PRILOSEC [Concomitant]
  7. BENLYSTA [Suspect]
     Indication: SYSTEMIC LUPUS ERYTHEMATOSUS
     Dosage: 1 IN 28 D, INTRAVENOUS DRIP
     Route: 041
     Dates: start: 20110626
  8. HYDROCHLORATHIAZIDE (HYDROCHLOROTHIAZIDE) (HYDROCHLOROTHIAZIDE) [Concomitant]
  9. EVISTA [Concomitant]
  10. PLAQUENIL [Concomitant]
  11. METHOTREXATE [Concomitant]
  12. CALCITRIOL [Concomitant]
  13. SIMVASTATIN [Concomitant]
  14. FOLIC ACID [Concomitant]

REACTIONS (1)
  - ALOPECIA [None]
